FAERS Safety Report 17781594 (Version 1)
Quarter: 2020Q2

REPORT INFORMATION
  Report Type: Spontaneous
  Country: US (occurrence: US)
  Receive Date: 20200514
  Receipt Date: 20200514
  Transmission Date: 20200714
  Serious: Yes (Other)
  Sender: FDA-Public Use
  Company Number: US-TEVA-2020-US-1235244

PATIENT
  Sex: Male

DRUGS (1)
  1. DIAZEPAM TEVA [Suspect]
     Active Substance: DIAZEPAM
     Route: 065

REACTIONS (7)
  - Anxiety [Unknown]
  - Nausea [Unknown]
  - Panic attack [Unknown]
  - Drug ineffective [Unknown]
  - Product substitution issue [Unknown]
  - Abdominal pain upper [Unknown]
  - Heart rate increased [Unknown]
